FAERS Safety Report 8987104 (Version 1)
Quarter: 2012Q4

REPORT INFORMATION
  Report Type: 
  Country: US (occurrence: US)
  Receive Date: 20121227
  Receipt Date: 20121227
  Transmission Date: 20130627
  Serious: Yes (Hospitalization, Other)
  Sender: FDA-Public Use
  Company Number: US-AMGEN-USASP2012082767

PATIENT
  Age: 69 Year
  Sex: Female

DRUGS (1)
  1. ENBREL [Suspect]
     Indication: PSORIATIC ARTHROPATHY
     Dosage: 50 mg, qwk
     Dates: start: 20090401

REACTIONS (7)
  - Arthritis [Recovered/Resolved]
  - Hypertension [Not Recovered/Not Resolved]
  - Cataract [Not Recovered/Not Resolved]
  - Skin plaque [Not Recovered/Not Resolved]
  - Discomfort [Not Recovered/Not Resolved]
  - Frustration [Not Recovered/Not Resolved]
  - Injection site bruising [Not Recovered/Not Resolved]
